FAERS Safety Report 18106266 (Version 1)
Quarter: 2020Q3

REPORT INFORMATION
  Report Type: Spontaneous
  Country: US (occurrence: US)
  Receive Date: 20200803
  Receipt Date: 20200803
  Transmission Date: 20201103
  Serious: Yes (Hospitalization)
  Sender: FDA-Public Use
  Company Number: US-TEVA-2020-US-1810017

PATIENT
  Age: 10 Year
  Sex: Male

DRUGS (1)
  1. ISOTRETINOIN. [Suspect]
     Active Substance: ISOTRETINOIN
     Indication: NEUROBLASTOMA
     Dosage: 160 MG/M2 DAILY; IN TWO DOSES OF ISOTRETINOIN FOR SIX CYCLES; EACH CYCLE CONSISTED OF TWO WEEKS ON A
     Route: 065

REACTIONS (2)
  - Epiphyses premature fusion [Not Recovered/Not Resolved]
  - Knee deformity [Not Recovered/Not Resolved]
